FAERS Safety Report 10092963 (Version 1)
Quarter: 2014Q2

REPORT INFORMATION
  Report Type: Spontaneous
  Country: US (occurrence: US)
  Receive Date: 20140421
  Receipt Date: 20140421
  Transmission Date: 20141212
  Serious: No
  Sender: FDA-Public Use
  Company Number: US-SA-2013SA113829

PATIENT
  Age: 44 Year
  Sex: Male

DRUGS (2)
  1. ALLEGRA [Suspect]
     Indication: MULTIPLE ALLERGIES
     Dosage: TAKEN FROM:COUPLE OF MONTHS
     Route: 048
  2. ASPIRIN [Suspect]
     Route: 065

REACTIONS (1)
  - Wrong drug administered [Unknown]
